FAERS Safety Report 7654370-1 (Version None)
Quarter: 2011Q3

REPORT INFORMATION
  Report Type: 
  Country: None (occurrence: None)
  Receive Date: 20110803
  Receipt Date: 20110718
  Transmission Date: 20111222
  Serious: Yes (Other)
  Sender: FDA-Public Use
  Company Number: PT-B.I. PHARMACEUTICALS,INC./RIDGEFIELD-2011-DE-04415PO

PATIENT
  Sex: Male

DRUGS (4)
  1. EMTRICITABINE [Concomitant]
     Indication: HIV INFECTION
     Route: 048
     Dates: start: 20110616
  2. TENOFOVIR DISOPROXIL FUMARATE [Concomitant]
     Indication: HIV INFECTION
     Route: 048
     Dates: start: 20110616
  3. VIRAMUNE [Suspect]
     Indication: HIV INFECTION
     Dosage: 200 MG
     Route: 048
     Dates: start: 20110616, end: 20110630
  4. VIRAMUNE [Suspect]
     Dosage: 400 MG
     Route: 048
     Dates: start: 20110701, end: 20110704

REACTIONS (7)
  - MYALGIA [None]
  - PYREXIA [None]
  - DIARRHOEA [None]
  - PRURITUS [None]
  - LIVER INJURY [None]
  - VOMITING [None]
  - RASH GENERALISED [None]
